FAERS Safety Report 20448651 (Version 1)
Quarter: 2022Q1

REPORT INFORMATION
  Report Type: Spontaneous
  Country: JP (occurrence: JP)
  Receive Date: 20220209
  Receipt Date: 20220209
  Transmission Date: 20220423
  Serious: Yes (Death, Hospitalization, Disabling)
  Sender: FDA-Public Use
  Company Number: JP-STRIDES ARCOLAB LIMITED-2022SP001076

PATIENT
  Age: 74 Year
  Sex: Male

DRUGS (2)
  1. PREDNISOLONE [Suspect]
     Active Substance: PREDNISOLONE
     Indication: Immune-mediated adverse reaction
     Dosage: 60 MILLIGRAM PER DAY
     Route: 065
  2. PREDNISOLONE [Suspect]
     Active Substance: PREDNISOLONE
     Dosage: 10 MILLIGRAM PER DAY
     Route: 065

REACTIONS (7)
  - Osteomyelitis bacterial [Fatal]
  - Mycobacterium abscessus infection [Fatal]
  - Extradural abscess [Fatal]
  - Respiratory failure [Fatal]
  - Spinal cord injury [Not Recovered/Not Resolved]
  - Spinal fracture [Not Recovered/Not Resolved]
  - Spinal cord paralysis [Not Recovered/Not Resolved]
